APPROVED DRUG PRODUCT: TESTOSTERONE
Active Ingredient: TESTOSTERONE
Strength: 50MG/5GM PACKET
Dosage Form/Route: GEL;TRANSDERMAL
Application: A212984 | Product #001 | TE Code: AB1
Applicant: ENCUBE ETHICALS PRIVATE LTD
Approved: Nov 9, 2021 | RLD: No | RS: No | Type: RX